FAERS Safety Report 9925768 (Version 1)
Quarter: 2014Q1

REPORT INFORMATION
  Report Type: Spontaneous
  Country: CA (occurrence: CA)
  Receive Date: 20140226
  Receipt Date: 20140226
  Transmission Date: 20141002
  Serious: Yes (Hospitalization)
  Sender: FDA-Public Use
  Company Number: CA-SHIRE-ALL1-2014-01113

PATIENT
  Age: 34 Year
  Sex: Female

DRUGS (2)
  1. ADDERALL XR [Suspect]
     Indication: PRODUCT USED FOR UNKNOWN INDICATION
     Dosage: 40 MG, 1X/DAY:QD
     Route: 048
  2. ADDERALL XR [Suspect]
     Dosage: 40 MG, 1X/DAY:QD
     Route: 048

REACTIONS (10)
  - Psychotic disorder [Recovered/Resolved]
  - Paranoia [Recovered/Resolved]
  - Decreased appetite [Recovered/Resolved]
  - Disturbance in attention [Recovered/Resolved]
  - Impaired driving ability [Recovered/Resolved]
  - Impulse-control disorder [Recovered/Resolved]
  - Energy increased [Recovered/Resolved]
  - Amnesia [Recovered/Resolved]
  - Insomnia [Recovered/Resolved]
  - Weight decreased [Recovered/Resolved]
